FAERS Safety Report 9147399 (Version 1)
Quarter: 2013Q1

REPORT INFORMATION
  Report Type: Spontaneous
  Country: JP (occurrence: JP)
  Receive Date: 20130307
  Receipt Date: 20130307
  Transmission Date: 20140127
  Serious: Yes (Hospitalization)
  Sender: FDA-Public Use
  Company Number: JP-GLAXOSMITHKLINE-B0871568A

PATIENT
  Age: 82 Year
  Sex: Male

DRUGS (2)
  1. ALKERAN [Suspect]
     Route: 042
  2. PREDNISOLONE [Concomitant]
     Route: 065

REACTIONS (6)
  - Pancytopenia [Unknown]
  - Renal impairment [Unknown]
  - Blood immunoglobulin M increased [Unknown]
  - Lymphocyte morphology abnormal [Unknown]
  - Myelodysplastic syndrome [Unknown]
  - Acute myeloid leukaemia [Unknown]
